FAERS Safety Report 6764838-8 (Version None)
Quarter: 2010Q2

REPORT INFORMATION
  Report Type: 
  Country: None (occurrence: None)
  Receive Date: 20100609
  Receipt Date: 20100511
  Transmission Date: 20101027
  Serious: No
  Sender: FDA-Public Use
  Company Number: 2010011654

PATIENT
  Age: 10 Month
  Weight: 7.7111 kg

DRUGS (1)
  1. CHILDREN'S ZYRTEC ALLERGY [Suspect]
     Indication: SEASONAL ALLERGY
     Dosage: 1 1-2 ML ONCE A DAY, ORAL
     Route: 048
     Dates: start: 20100428, end: 20100429

REACTIONS (4)
  - DIARRHOEA [None]
  - EXPIRED DRUG ADMINISTERED [None]
  - PRODUCT QUALITY ISSUE [None]
  - WRONG DRUG ADMINISTERED [None]
